FAERS Safety Report 23272267 (Version 1)
Quarter: 2023Q4

REPORT INFORMATION
  Report Type: Spontaneous
  Country: US (occurrence: None)
  Receive Date: 20231206
  Receipt Date: 20231206
  Transmission Date: 20240110
  Serious: Yes (unspecified)
  Sender: FDA-Public Use
  Company Number: None

PATIENT
  Age: 35 Year
  Sex: Male
  Weight: 83.25 kg

DRUGS (5)
  1. FINASTERIDE 0.1% / MINOXIDIL 5% [Suspect]
     Active Substance: FINASTERIDE\MINOXIDIL
     Indication: Alopecia
     Dosage: OTHER QUANTITY : 4 SPRAY(S);?FREQUENCY : DAILY;?OTHER ROUTE : APPLIED TO HEAD/HAIR;?
     Route: 050
     Dates: start: 20230413, end: 20231201
  2. VITAMIN D [Concomitant]
     Active Substance: VITAMIN D NOS
  3. ZINC [Concomitant]
     Active Substance: PYRITHIONE ZINC\ZINC\ZINC CHLORIDE
  4. PRASTERONE [Concomitant]
     Active Substance: PRASTERONE
  5. VITAMIN B [Concomitant]
     Active Substance: VITAMIN B

REACTIONS (11)
  - Headache [None]
  - Abdominal distension [None]
  - Pain [None]
  - Sticky skin [None]
  - Insomnia [None]
  - Fatigue [None]
  - Asthenia [None]
  - Skin disorder [None]
  - Erectile dysfunction [None]
  - Confusional state [None]
  - Aphasia [None]

NARRATIVE: CASE EVENT DATE: 20231201
